FAERS Safety Report 25647832 (Version 1)
Quarter: 2025Q3

REPORT INFORMATION
  Report Type: Spontaneous
  Country: CN (occurrence: CN)
  Receive Date: 20250806
  Receipt Date: 20250806
  Transmission Date: 20251021
  Serious: Yes (Hospitalization, Other)
  Sender: ROCHE
  Company Number: CN-ROCHE-10000352466

PATIENT
  Age: 62 Year
  Sex: Female

DRUGS (3)
  1. OBINUTUZUMAB [Suspect]
     Active Substance: OBINUTUZUMAB
     Indication: Lymphoma
     Dosage: NEXT DOSE ON 18-JUL-2025
     Route: 042
     Dates: start: 20250717, end: 20250718
  2. DIPHENHYDRAMINE [Concomitant]
     Active Substance: DIPHENHYDRAMINE
     Route: 030
  3. DEXAMETHASONE [Concomitant]
     Active Substance: DEXAMETHASONE
     Route: 042

REACTIONS (7)
  - Hypersensitivity [Recovering/Resolving]
  - Febrile neutropenia [Recovering/Resolving]
  - Haemoglobin decreased [Not Recovered/Not Resolved]
  - Red blood cell count decreased [Not Recovered/Not Resolved]
  - White blood cell count decreased [Recovering/Resolving]
  - Platelet count decreased [Recovering/Resolving]
  - Procalcitonin increased [Recovered/Resolved]

NARRATIVE: CASE EVENT DATE: 20250717
